FAERS Safety Report 15831790 (Version 2)
Quarter: 2022Q2

REPORT INFORMATION
  Report Type: Spontaneous
  Country: FR (occurrence: FR)
  Receive Date: 20190116
  Receipt Date: 20220503
  Transmission Date: 20220721
  Serious: Yes (Life-Threatening, Disabling)
  Sender: FDA-Public Use
  Company Number: None

PATIENT
  Age: 61 Year
  Sex: Male

DRUGS (4)
  1. VANCOMYCIN [Suspect]
     Active Substance: VANCOMYCIN
     Indication: Antibiotic therapy
     Dates: start: 201411
  2. SULFAMETHOXAZOLE\TRIMETHOPRIM [Suspect]
     Active Substance: SULFAMETHOXAZOLE\TRIMETHOPRIM
     Indication: Escherichia infection
     Dosage: TRIPLE-ANTIBIOTIC THERAPY AND NOV-2014,NOV-2014,
     Route: 048
     Dates: start: 2014
  3. AMOXICILLIN [Suspect]
     Active Substance: AMOXICILLIN
     Indication: Enterococcal infection
     Dosage: TRIPLE-ANTIBIOTIC THERAPY AND 2014,
     Route: 048
     Dates: start: 2014
  4. METRONIDAZOLE [Suspect]
     Active Substance: METRONIDAZOLE
     Indication: Proteus infection
     Dosage: TRIPLE-ANTIBIOTIC THERAPY AND ,NOV-2014,2014
     Route: 048
     Dates: start: 201411

REACTIONS (2)
  - Drug ineffective [Unknown]
  - Treatment failure [Unknown]
